FAERS Safety Report 7760325-9 (Version None)
Quarter: 2011Q3

REPORT INFORMATION
  Report Type: 
  Country: None (occurrence: None)
  Receive Date: 20110919
  Receipt Date: 20110914
  Transmission Date: 20111222
  Serious: Yes (Other)
  Sender: FDA-Public Use
  Company Number: US-ABBOTT-11P-163-0854761-00

PATIENT
  Sex: Female

DRUGS (12)
  1. RAMIPRIL [Concomitant]
     Indication: HYPERTENSION
  2. MULTI-VITAMINS [Concomitant]
     Indication: VITAMIN SUPPLEMENTATION
  3. ZOLPIDEM [Concomitant]
     Indication: INSOMNIA
  4. SYMVISC INJECTION [Concomitant]
     Indication: OSTEOARTHRITIS
  5. COQ10 [Concomitant]
     Indication: VITAMIN SUPPLEMENTATION
  6. HYDROCHLOROTHIAZIDE [Concomitant]
     Indication: HYPERTENSION
  7. SANCTURA [Concomitant]
     Indication: URINARY INCONTINENCE
  8. RESTASIS [Concomitant]
     Indication: DRY EYE
  9. VITAMIN D [Concomitant]
     Indication: VITAMIN SUPPLEMENTATION
  10. HUMIRA [Suspect]
     Indication: PSORIASIS
     Route: 058
     Dates: start: 20101101
  11. NEXIUM [Concomitant]
     Indication: DYSPEPSIA
  12. CALCIUM CARBONATE [Concomitant]
     Indication: MINERAL SUPPLEMENTATION

REACTIONS (3)
  - BACK PAIN [None]
  - LUMBAR SPINAL STENOSIS [None]
  - GAIT DISTURBANCE [None]
